FAERS Safety Report 14372871 (Version 1)
Quarter: 2018Q1

REPORT INFORMATION
  Report Type: Spontaneous
  Country: US (occurrence: US)
  Receive Date: 20180110
  Receipt Date: 20180110
  Transmission Date: 20180509
  Serious: No
  Sender: FDA-Public Use
  Company Number: US-PFIZER INC-2018007292

PATIENT
  Age: 60 Year
  Sex: Male

DRUGS (1)
  1. AMLODIPINE BESILATE [Suspect]
     Active Substance: AMLODIPINE BESYLATE
     Dosage: UNK

REACTIONS (6)
  - Erectile dysfunction [Unknown]
  - Fatigue [Unknown]
  - Blood magnesium decreased [Unknown]
  - Tremor [Unknown]
  - Laboratory test abnormal [Unknown]
  - Dizziness [Unknown]
